FAERS Safety Report 24276430 (Version 3)
Quarter: 2025Q1

REPORT INFORMATION
  Report Type: Spontaneous
  Country: US (occurrence: US)
  Receive Date: 20240903
  Receipt Date: 20250225
  Transmission Date: 20250409
  Serious: No
  Sender: BRISTOL-MYERS SQUIBB COMPANY
  Company Number: US-BRISTOL-MYERS SQUIBB COMPANY-2024-139594

PATIENT
  Age: 77 Year
  Sex: Female
  Weight: 56.25 kg

DRUGS (9)
  1. POMALYST [Suspect]
     Active Substance: POMALIDOMIDE
     Indication: Plasma cell myeloma refractory
     Route: 048
  2. POMALYST [Suspect]
     Active Substance: POMALIDOMIDE
     Indication: Plasma cell myeloma
     Route: 048
  3. METOPROLOL [Concomitant]
     Active Substance: METOPROLOL
  4. FISH OIL [Concomitant]
     Active Substance: FISH OIL
  5. VITAMIN D3 [Concomitant]
     Active Substance: CHOLECALCIFEROL
  6. ASPIRIN [Concomitant]
     Active Substance: ASPIRIN
  7. COENZYME Q10 [Concomitant]
     Active Substance: DIETARY SUPPLEMENT\UBIDECARENONE
  8. ISOSORBIDE [Concomitant]
     Active Substance: ISOSORBIDE
  9. MELOXICAM [Concomitant]
     Active Substance: MELOXICAM

REACTIONS (4)
  - Pain in extremity [Unknown]
  - Off label use [Unknown]
  - Fatigue [Recovered/Resolved]
  - White blood cell count decreased [Recovering/Resolving]
